FAERS Safety Report 9311878 (Version 1)
Quarter: 2013Q2

REPORT INFORMATION
  Report Type: Spontaneous
  Country: MX (occurrence: MX)
  Receive Date: 20130528
  Receipt Date: 20130528
  Transmission Date: 20140414
  Serious: Yes (Other)
  Sender: FDA-Public Use
  Company Number: PHHY2013MX052117

PATIENT
  Sex: Female

DRUGS (1)
  1. OMNITROPE [Suspect]
     Dosage: 2.7 MG, UNK
     Dates: start: 201109

REACTIONS (1)
  - Goitre [Unknown]
